FAERS Safety Report 20178202 (Version 1)
Quarter: 2021Q4

REPORT INFORMATION
  Report Type: Spontaneous
  Country: AU (occurrence: None)
  Receive Date: 20211213
  Receipt Date: 20211213
  Transmission Date: 20220304
  Serious: Yes (Hospitalization, Other)
  Sender: FDA-Public Use
  Company Number: AU-MDD US Operations-MDD202112-002531

PATIENT
  Age: 78 Year
  Sex: Male

DRUGS (24)
  1. APOMORPHINE HYDROCHLORIDE [Suspect]
     Active Substance: APOMORPHINE HYDROCHLORIDE
     Indication: Product used for unknown indication
  2. APOMORPHINE HYDROCHLORIDE [Suspect]
     Active Substance: APOMORPHINE HYDROCHLORIDE
     Indication: Product used for unknown indication
  3. APOMORPHINE HYDROCHLORIDE [Suspect]
     Active Substance: APOMORPHINE HYDROCHLORIDE
  4. APOMORPHINE HYDROCHLORIDE [Suspect]
     Active Substance: APOMORPHINE HYDROCHLORIDE
  5. CARBIDOPA\ENTACAPONE\LEVODOPA [Concomitant]
     Active Substance: CARBIDOPA\ENTACAPONE\LEVODOPA
     Dosage: NOT PROVIDED
  6. CARBIDOPA\LEVODOPA [Concomitant]
     Active Substance: CARBIDOPA\LEVODOPA
     Dosage: NOT PROVIDED
  7. DOMPERIDONE [Concomitant]
     Active Substance: DOMPERIDONE
     Dosage: NOT PROVIDED
  8. PRAMIPEXOLE [Concomitant]
     Active Substance: PRAMIPEXOLE
     Dosage: NOT PROVIDED
  9. RASAGILINE [Concomitant]
     Active Substance: RASAGILINE
     Dosage: NOT PROVIDED
  10. RABEPRAZOLE [Concomitant]
     Active Substance: RABEPRAZOLE
     Dosage: NOT PROVIDED
  11. AMANTADINE [Concomitant]
     Active Substance: AMANTADINE
     Dosage: NOT PROVIDED
  12. FUROSEMIDE [Concomitant]
     Active Substance: FUROSEMIDE
     Dosage: NOT PROVIDED
  13. CALCIUM\VITAMIN D [Concomitant]
     Active Substance: CALCIUM\VITAMIN D
     Dosage: NOT PROVIDED
  14. FLUDROCORTISONE [Concomitant]
     Active Substance: FLUDROCORTISONE
     Dosage: NOT PROVIDED
  15. SOLIFENACIN [Concomitant]
     Active Substance: SOLIFENACIN
     Dosage: NOT PROVIDED
  16. DUTASTERIDE\TAMSULOSIN HYDROCHLORIDE [Concomitant]
     Active Substance: DUTASTERIDE\TAMSULOSIN HYDROCHLORIDE
     Dosage: NOT PROVIDED
  17. PREGABALIN [Concomitant]
     Active Substance: PREGABALIN
     Dosage: NOT PROVIDED
  18. ATORVASTATIN [Concomitant]
     Active Substance: ATORVASTATIN
     Dosage: NOT PROVIDED
  19. RIVAROXABAN [Concomitant]
     Active Substance: RIVAROXABAN
     Dosage: NOT PROVIDED
  20. METFORMIN [Concomitant]
     Active Substance: METFORMIN HYDROCHLORIDE
     Dosage: NOT PROVIDED
  21. NORTRIPTYLINE [Concomitant]
     Active Substance: NORTRIPTYLINE
     Dosage: NOT PROVIDED
  22. AMITRIPTYLINE [Concomitant]
     Active Substance: AMITRIPTYLINE
     Dosage: NOT PROVIDED
  23. BISACODYL [Concomitant]
     Active Substance: BISACODYL
     Dosage: NOT PROVIDED
  24. INTRAGAM P [Concomitant]
     Active Substance: HUMAN IMMUNOGLOBULIN G
     Dosage: NOT PROVIDED
     Route: 042

REACTIONS (11)
  - Hip arthroplasty [Unknown]
  - Pneumonia aspiration [Unknown]
  - Fall [Unknown]
  - Pyrexia [Recovering/Resolving]
  - Parkinson^s disease [Unknown]
  - Micturition urgency [Not Recovered/Not Resolved]
  - Neuralgia [Recovering/Resolving]
  - Photopsia [Unknown]
  - Back pain [Not Recovered/Not Resolved]
  - Joint swelling [Recovering/Resolving]
  - Injection site bruising [Unknown]
